FAERS Safety Report 5572882-1 (Version None)
Quarter: 2007Q4

REPORT INFORMATION
  Report Type: 
  Country: None (occurrence: None)
  Receive Date: 20071223
  Receipt Date: 20071222
  Transmission Date: 20080405
  Serious: Yes (Hospitalization)
  Sender: FDA-Public Use
  Company Number: PHHO2005US19441

PATIENT
  Age: 84 Year
  Sex: Male
  Weight: 109 kg

DRUGS (4)
  1. ZOLEDRONIC ACID [Suspect]
     Indication: OSTEOPOROTIC FRACTURE
     Dosage: DOUBLE-BLIND
     Route: 042
     Dates: start: 20020828
  2. ZOLEDRONIC ACID [Suspect]
     Dosage: 5MG, ONCE YEARLY
  3. VITAMIN D [Concomitant]
  4. CALCIUM CARBONATE [Concomitant]

REACTIONS (8)
  - AMPUTATION [None]
  - ARTERIAL OCCLUSIVE DISEASE [None]
  - CELLULITIS [None]
  - DIABETES MELLITUS [None]
  - DIABETIC FOOT [None]
  - DISEASE PROGRESSION [None]
  - INFECTION [None]
  - OSTEOMYELITIS [None]
